FAERS Safety Report 9819341 (Version 1)
Quarter: 2014Q1

REPORT INFORMATION
  Report Type: Spontaneous
  Country: FR (occurrence: FR)
  Receive Date: 20140115
  Receipt Date: 20140115
  Transmission Date: 20141002
  Serious: Yes (Disabling, Other)
  Sender: FDA-Public Use
  Company Number: FR-PFIZER INC-2014010010

PATIENT
  Sex: Female

DRUGS (1)
  1. TENORMIN [Suspect]
     Dosage: 50 MG, DAILY
     Route: 064

REACTIONS (3)
  - Maternal exposure timing unspecified [Recovered/Resolved]
  - Encephalopathy [Not Recovered/Not Resolved]
  - Mitochondrial encephalomyopathy [Not Recovered/Not Resolved]
